FAERS Safety Report 7396790-9 (Version None)
Quarter: 2011Q2

REPORT INFORMATION
  Report Type: 
  Country: None (occurrence: None)
  Receive Date: 20110406
  Receipt Date: 20110325
  Transmission Date: 20111010
  Serious: Yes (Other)
  Sender: FDA-Public Use
  Company Number: FR-SANOFI-AVENTIS-2011SA018610

PATIENT
  Age: 70 Year
  Sex: Female

DRUGS (1)
  1. MULTAQ [Suspect]
     Route: 048

REACTIONS (1)
  - PURPURA [None]
